FAERS Safety Report 4757314-5 (Version None)
Quarter: 2005Q3

REPORT INFORMATION
  Report Type: 
  Country: None (occurrence: None)
  Receive Date: 20050829
  Receipt Date: 20050819
  Transmission Date: 20060218
  Serious: Yes (Life-Threatening, Hospitalization)
  Sender: FDA-Public Use
  Company Number: 2005118317

PATIENT
  Age: 6 Year
  Sex: Female

DRUGS (1)
  1. GENOTROPIN [Suspect]
     Indication: TURNER'S SYNDROME
     Dosage: (3.5 MG/WEEK(7 INJECTIONS A WEEK)
     Dates: start: 20020313

REACTIONS (1)
  - SUPRAVENTRICULAR TACHYCARDIA [None]
